FAERS Safety Report 6916721-2 (Version None)
Quarter: 2010Q3

REPORT INFORMATION
  Report Type: 
  Country: None (occurrence: None)
  Receive Date: 20100810
  Receipt Date: 20100802
  Transmission Date: 20110219
  Serious: Yes (Other)
  Sender: FDA-Public Use
  Company Number: BR-ROCHE-719270

PATIENT
  Sex: Female
  Weight: 80 kg

DRUGS (13)
  1. TOCILIZUMAB [Suspect]
     Indication: RHEUMATOID ARTHRITIS
     Dosage: FORM: INFUSION
     Route: 042
     Dates: start: 20091101, end: 20091101
  2. TOCILIZUMAB [Suspect]
     Route: 042
     Dates: start: 20091201, end: 20091201
  3. TOCILIZUMAB [Suspect]
     Route: 042
     Dates: start: 20100201, end: 20100201
  4. TOCILIZUMAB [Suspect]
     Route: 042
     Dates: start: 20100401, end: 20100401
  5. CODATEN [Concomitant]
  6. DEFLAZACORT [Concomitant]
  7. CORTISONE [Concomitant]
  8. HYGROTON [Concomitant]
     Indication: BLOOD PRESSURE ABNORMAL
  9. CLONAZEPAM [Concomitant]
  10. VALIUM [Concomitant]
  11. NEXIUM [Concomitant]
     Indication: GASTRIC DISORDER
  12. DORFLEX [Concomitant]
  13. TANDRILAX [Concomitant]

REACTIONS (10)
  - ARTHRALGIA [None]
  - GENITAL HERPES [None]
  - IMMUNODEFICIENCY [None]
  - LARYNGEAL OEDEMA [None]
  - MALAISE [None]
  - PNEUMONIA [None]
  - RASH [None]
  - THERAPEUTIC RESPONSE DECREASED [None]
  - TOOTH ABSCESS [None]
  - URINARY TRACT INFECTION [None]
